FAERS Safety Report 7077338-5 (Version None)
Quarter: 2010Q4

REPORT INFORMATION
  Report Type: 
  Country: None (occurrence: None)
  Receive Date: 20101029
  Receipt Date: 20101029
  Transmission Date: 20110411
  Serious: Yes (Life-Threatening, Hospitalization, Other)
  Sender: FDA-Public Use
  Company Number: None

PATIENT
  Age: 75 Year
  Sex: Male
  Weight: 85.7298 kg

DRUGS (1)
  1. ADCIRCA [Suspect]
     Indication: PULMONARY HYPERTENSION
     Dosage: 2 - 20 MG TABLETS ONCE A DAY ONE TIME A DAY PO
     Route: 048
     Dates: start: 20101022, end: 20101023

REACTIONS (2)
  - NONSPECIFIC REACTION [None]
  - PRODUCT QUALITY ISSUE [None]
